FAERS Safety Report 11103233 (Version 1)
Quarter: 2015Q2

REPORT INFORMATION
  Report Type: Spontaneous
  Country: GB (occurrence: GB)
  Receive Date: 20150511
  Receipt Date: 20150511
  Transmission Date: 20150821
  Serious: Yes (Other)
  Sender: FDA-Public Use
  Company Number: GB-009507513-1505GBR001779

PATIENT
  Age: 18 Year
  Sex: Female
  Weight: 79 kg

DRUGS (4)
  1. HYDROCORTISONE. [Concomitant]
     Active Substance: HYDROCORTISONE
     Dosage: 1 DOSAGE FORM, APPLY TWICE A DAY.
     Dates: start: 20150414
  2. BETAMETHASONE VALERATE. [Suspect]
     Active Substance: BETAMETHASONE VALERATE
     Dosage: UNK
     Route: 061
     Dates: start: 20150414
  3. CLOBETASOL PROPIONATE. [Concomitant]
     Active Substance: CLOBETASOL PROPIONATE
     Dosage: APPLY 1-2 TIMES A DAY AS DIRECTED.
     Dates: start: 20150116, end: 20150414
  4. AVEENO (OAT) [Concomitant]
     Dosage: USE AS DIRECTED
     Dates: start: 20150414, end: 20150419

REACTIONS (2)
  - Application site rash [Unknown]
  - Hair growth abnormal [Unknown]

NARRATIVE: CASE EVENT DATE: 20150427
